FAERS Safety Report 9455726 (Version 1)
Quarter: 2013Q3

REPORT INFORMATION
  Report Type: Spontaneous
  Country: US (occurrence: US)
  Receive Date: 20130813
  Receipt Date: 20130813
  Transmission Date: 20140515
  Serious: No
  Sender: FDA-Public Use
  Company Number: US-B.I. PHARMACEUTICALS,INC./RIDGEFIELD-2013-BI-23940BP

PATIENT
  Age: 5 Year
  Sex: Male

DRUGS (1)
  1. ZANTAC (RANITIDINE HYDROCHLORIDE) [Suspect]
     Dosage: STRENGTH: 150 MG;
     Route: 048
     Dates: start: 20130806

REACTIONS (1)
  - Accidental exposure to product by child [Recovered/Resolved]
